FAERS Safety Report 17040666 (Version 1)
Quarter: 2019Q4

REPORT INFORMATION
  Report Type: Spontaneous
  Country: US (occurrence: US)
  Receive Date: 20191117
  Receipt Date: 20191117
  Transmission Date: 20200122
  Serious: Yes (Hospitalization)
  Sender: FDA-Public Use
  Company Number: GXKR2009US05669

PATIENT
  Age: 47 Year
  Sex: Female

DRUGS (1)
  1. SULFADIAZINE. [Suspect]
     Active Substance: SULFADIAZINE
     Indication: EYE INFECTION TOXOPLASMAL
     Dosage: UNK
     Route: 048

REACTIONS (7)
  - Oliguria [Recovered/Resolved]
  - Renal failure [Recovered/Resolved]
  - Nephrolithiasis [Recovered/Resolved]
  - Hydronephrosis [Recovered/Resolved]
  - Blood creatinine increased [Recovered/Resolved]
  - Flank pain [Recovered/Resolved]
  - Ureteroscopy [Recovered/Resolved]
